FAERS Safety Report 19722278 (Version 1)
Quarter: 2021Q3

REPORT INFORMATION
  Report Type: Spontaneous
  Country: DE (occurrence: DE)
  Receive Date: 20210819
  Receipt Date: 20210819
  Transmission Date: 20211014
  Serious: Yes (Hospitalization, Other)
  Sender: FDA-Public Use
  Company Number: DE-MYLANLABS-2021M1052092

PATIENT
  Age: 862 Month
  Sex: Female
  Weight: 42 kg

DRUGS (13)
  1. FUROSEMIDE W/SPIRONOLACTONE [Concomitant]
     Active Substance: FUROSEMIDE\SPIRONOLACTONE
     Dosage: 50/20 DAILY
  2. RIVAROXABAN [Concomitant]
     Active Substance: RIVAROXABAN
     Dosage: 15 MILLIGRAM, QD
  3. DAPAGLIFLOZIN. [Suspect]
     Active Substance: DAPAGLIFLOZIN
     Indication: CARDIAC FAILURE CHRONIC
     Dosage: 10 MILLIGRAM, QD
     Route: 048
  4. BISOPROLOL [Concomitant]
     Active Substance: BISOPROLOL
     Dosage: 1 MILLIGRAM, QD (5 MG 1/2?0?0)
  5. SACUBITRIL W/VALSARTAN [Concomitant]
     Active Substance: SACUBITRIL\VALSARTAN
     Dosage: 24/26 MG TWO TIMES DAILY
  6. PANTOPRAZOLE [Concomitant]
     Active Substance: PANTOPRAZOLE
     Dosage: 20 MILLIGRAM, QD
  7. FUROSEMIDE. [Concomitant]
     Active Substance: FUROSEMIDE
     Dosage: START DATE: JUN?2016: 40
  8. AMLODIPINE W/OLMESARTAN [Concomitant]
     Active Substance: AMLODIPINE MALEATE\OLMESARTAN MEDOXOMIL
     Dosage: 20/ 5/12.5 MG DAILY
  9. CANDESARTAN/HYDROCHLOROTHIAZIDE [Suspect]
     Active Substance: CANDESARTAN CILEXETIL\HYDROCHLOROTHIAZIDE
     Indication: PRODUCT USED FOR UNKNOWN INDICATION
     Dosage: 8/12.5 MG DAILY
     Route: 048
  10. TORSEMIDE. [Concomitant]
     Active Substance: TORSEMIDE
     Dosage: 10 MILLIGRAM, QD
  11. DONEPEZIL. [Concomitant]
     Active Substance: DONEPEZIL
     Dosage: 5 MILLIGRAM, QD
  12. SPIRONOLACTONE. [Concomitant]
     Active Substance: SPIRONOLACTONE
     Dosage: 25 MILLIGRAM, QD
  13. EZETIMIBE + SIMVASTATIN [Concomitant]
     Active Substance: EZETIMIBE\SIMVASTATIN
     Dosage: 10/20 MG AT NIGHT

REACTIONS (11)
  - Weight decreased [Unknown]
  - Malaise [Unknown]
  - Dizziness [Unknown]
  - Cardiac failure [Unknown]
  - Dyspnoea [Unknown]
  - Respiratory failure [Unknown]
  - General physical health deterioration [Unknown]
  - Therapeutic product effect decreased [Unknown]
  - Performance status decreased [Unknown]
  - Brain natriuretic peptide abnormal [Unknown]
  - Fatigue [Unknown]

NARRATIVE: CASE EVENT DATE: 201207
